APPROVED DRUG PRODUCT: TIZANIDINE HYDROCHLORIDE
Active Ingredient: TIZANIDINE HYDROCHLORIDE
Strength: EQ 4MG BASE
Dosage Form/Route: CAPSULE;ORAL
Application: A209605 | Product #002 | TE Code: AB
Applicant: JUBILANT GENERICS LTD
Approved: Aug 4, 2017 | RLD: No | RS: No | Type: RX